FAERS Safety Report 9294070 (Version 1)
Quarter: 2013Q2

REPORT INFORMATION
  Report Type: Spontaneous
  Country: US (occurrence: None)
  Receive Date: 20130514
  Receipt Date: 20130514
  Transmission Date: 20140414
  Serious: Yes (Other)
  Sender: FDA-Public Use
  Company Number: AE-13-001

PATIENT
  Sex: Female

DRUGS (1)
  1. EQUALINE [Suspect]
     Indication: EAR PAIN
     Dates: start: 20120111

REACTIONS (3)
  - Deafness [None]
  - Thermal burn [None]
  - Reaction to drug excipients [None]
